FAERS Safety Report 7750816-9 (Version None)
Quarter: 2011Q3

REPORT INFORMATION
  Report Type: 
  Country: None (occurrence: None)
  Receive Date: 20110914
  Receipt Date: 20110908
  Transmission Date: 20111222
  Serious: Yes (Hospitalization)
  Sender: FDA-Public Use
  Company Number: NL-ABBOTT-11P-114-0853570-00

PATIENT
  Sex: Female
  Weight: 82 kg

DRUGS (15)
  1. GABAPENTINE [Concomitant]
     Indication: ANKYLOSING SPONDYLITIS
     Route: 048
  2. OMEPRAZOLE [Concomitant]
     Indication: PROPHYLAXIS
  3. LOSARTAN/HYDROCHLOORTHIAZIDE [Concomitant]
     Indication: HYPERTENSION
     Dosage: 100/25MG QD
     Route: 048
  4. ACETAMINOPHEN [Concomitant]
     Indication: ANKYLOSING SPONDYLITIS
     Route: 048
  5. HUMIRA [Suspect]
     Indication: ANKYLOSING SPONDYLITIS
     Route: 058
     Dates: start: 20110414, end: 20110825
  6. CINNARIZINE [Concomitant]
     Indication: MENIERE'S DISEASE
     Route: 048
     Dates: start: 20060101
  7. HYDROKININE DRAGEE [Concomitant]
     Indication: GASTROINTESTINAL PAIN
     Route: 048
  8. ALENDRONIC ACID [Concomitant]
     Indication: OSTEOPOROSIS PROPHYLAXIS
     Route: 048
     Dates: start: 20110420
  9. BUMETANIDE [Concomitant]
     Indication: FLUID RETENTION
     Route: 048
  10. LORMETAZEPAM [Concomitant]
     Indication: INSOMNIA
     Route: 048
  11. OMEPRAZOLE [Concomitant]
     Indication: GASTRIC DISORDER
     Route: 048
  12. CALCIUM CARBONATE W/COLECALCIFEROL [Concomitant]
     Indication: OSTEOPOROSIS PROPHYLAXIS
     Route: 048
     Dates: start: 20060101
  13. BETAHISTINE [Concomitant]
     Indication: MENIERE'S DISEASE
     Route: 048
     Dates: start: 20060101
  14. NITRENDIPINE [Concomitant]
     Indication: HYPERTENSION
     Route: 048
  15. VITAMIN B COMPLEX CAP [Concomitant]
     Indication: VITAMIN B COMPLEX DEFICIENCY
     Route: 048

REACTIONS (1)
  - ANXIETY [None]
